FAERS Safety Report 5389160-6 (Version None)
Quarter: 2007Q3

REPORT INFORMATION
  Report Type: 
  Country: None (occurrence: None)
  Receive Date: 20070717
  Receipt Date: 20070716
  Transmission Date: 20080115
  Serious: Yes (Hospitalization)
  Sender: FDA-Public Use
  Company Number: IT-BRISTOL-MYERS SQUIBB COMPANY-13846209

PATIENT
  Age: 88 Year
  Sex: Male

DRUGS (8)
  1. COUMADIN [Suspect]
     Indication: ATRIAL FIBRILLATION
     Route: 048
     Dates: start: 20000610, end: 20050610
  2. LASIX [Concomitant]
  3. QUARK [Concomitant]
  4. DELTACORTENE [Concomitant]
  5. MEPRAL [Concomitant]
  6. ALLOPURINOL [Concomitant]
  7. TRANQUIRIT [Concomitant]
     Route: 048
  8. SERETIDE [Concomitant]

REACTIONS (2)
  - ABDOMINAL PAIN [None]
  - ABDOMINAL PAIN UPPER [None]
